FAERS Safety Report 23148066 (Version 3)
Quarter: 2025Q4

REPORT INFORMATION
  Report Type: Spontaneous
  Country: EU (occurrence: EU)
  Receive Date: 20231106
  Receipt Date: 20251003
  Transmission Date: 20260118
  Serious: Yes (Life-Threatening, Hospitalization, Other)
  Sender: NOVARTIS
  Company Number: EU-ROCHE-3448404

PATIENT
  Age: 52 Year
  Sex: Female

DRUGS (8)
  1. CYCLOSPORINE [Interacting]
     Active Substance: CYCLOSPORINE
     Indication: Prophylaxis against transplant rejection
     Dosage: 100 MG, QD
     Route: 065
  2. CYCLOSPORINE [Interacting]
     Active Substance: CYCLOSPORINE
     Indication: Granulomatosis with polyangiitis
     Dosage: 100 MG, QD
     Route: 065
  3. RITUXIMAB [Interacting]
     Active Substance: RITUXIMAB
     Indication: Granulomatosis with polyangiitis
     Dosage: EVERY 6TH MONTH
     Route: 065
  4. RITUXIMAB [Interacting]
     Active Substance: RITUXIMAB
     Indication: Prophylaxis against transplant rejection
     Dosage: EVERY 6TH MONTH
     Route: 065
  5. PREDNISOLONE [Interacting]
     Active Substance: PREDNISOLONE
     Indication: Prophylaxis against transplant rejection
     Dosage: 5 MG, QD
     Route: 065
  6. PREDNISOLONE [Interacting]
     Active Substance: PREDNISOLONE
     Indication: Granulomatosis with polyangiitis
     Dosage: 5 MG, QD
     Route: 065
  7. PREDNISOLONE [Interacting]
     Active Substance: PREDNISOLONE
     Indication: Prophylaxis against transplant rejection
  8. SARS-CoV-2 vaccine [Concomitant]
     Indication: Product used for unknown indication
     Dosage: FIVE DOSES OF THE SARS-COV-2 VACCINE
     Route: 065

REACTIONS (5)
  - COVID-19 [Recovered/Resolved]
  - Vaccination failure [Recovered/Resolved]
  - Vaccine interaction [Unknown]
  - Blood immunoglobulin G decreased [Unknown]
  - Off label use [Unknown]

NARRATIVE: CASE EVENT DATE: 20221101
